FAERS Safety Report 11938841 (Version 1)
Quarter: 2016Q1

REPORT INFORMATION
  Report Type: Spontaneous
  Country: BR (occurrence: BR)
  Receive Date: 20160122
  Receipt Date: 20160122
  Transmission Date: 20160526
  Serious: Yes (Other)
  Sender: FDA-Public Use
  Company Number: BR-GLAXOSMITHKLINE-BR2016GSK007166

PATIENT
  Sex: Female

DRUGS (1)
  1. SALBUTAMOL [Suspect]
     Active Substance: ALBUTEROL
     Indication: ASTHMATIC CRISIS
     Dosage: UNK

REACTIONS (5)
  - Back pain [Unknown]
  - Tension [Unknown]
  - Cardiac flutter [Unknown]
  - Hyperhidrosis [Unknown]
  - Speech disorder [Unknown]
